FAERS Safety Report 14967309 (Version 1)
Quarter: 2018Q2

REPORT INFORMATION
  Report Type: Report from Study
  Country: US (occurrence: US)
  Receive Date: 20180604
  Receipt Date: 20180604
  Transmission Date: 20180711
  Serious: Yes (Other)
  Sender: FDA-Public Use
  Company Number: US-CHEPLA-1931275

PATIENT

DRUGS (2)
  1. INTERFERON ALFA-2A [Suspect]
     Active Substance: INTERFERON ALFA-2A
     Indication: MALIGNANT MELANOMA STAGE IV
     Dosage: 6 MU/M2
     Route: 058
  2. TRETINOIN. [Suspect]
     Active Substance: TRETINOIN
     Indication: MALIGNANT MELANOMA STAGE IV
     Dosage: 37.5 MG/M2 TWICE DAILY TAKEN ORALLY WITH1 MEALS FOR 3 WEEKS, FOLLOWED BY A 1-WEEK HIATUS
     Route: 048

REACTIONS (32)
  - Blood bilirubin increased [Unknown]
  - Cardiac failure congestive [Unknown]
  - Disorientation [Unknown]
  - Vertigo [Unknown]
  - Malaise [Unknown]
  - Hypertriglyceridaemia [Unknown]
  - Urticaria [Unknown]
  - Vaginal infection [Unknown]
  - Arrhythmia [Unknown]
  - Dizziness [Unknown]
  - Fatigue [Unknown]
  - Lethargy [Unknown]
  - Vomiting [Unknown]
  - Urinary tract infection [Unknown]
  - Anaemia [Unknown]
  - Keratitis [Unknown]
  - Dyspnoea [Unknown]
  - Hypotension [Unknown]
  - PO2 abnormal [Unknown]
  - PCO2 abnormal [Unknown]
  - Headache [Unknown]
  - Pyrexia [Unknown]
  - Hyponatraemia [Unknown]
  - Myalgia [Unknown]
  - Rash [Unknown]
  - Stomatitis [Unknown]
  - Conjunctivitis [Unknown]
  - Granulocytopenia [Unknown]
  - Arthralgia [Unknown]
  - Nausea [Unknown]
  - Pulmonary oedema [Unknown]
  - Product use in unapproved indication [Unknown]
